FAERS Safety Report 8660267 (Version 2)
Quarter: 2016Q3

REPORT INFORMATION
  Report Type: Spontaneous
  Country: JP (occurrence: JP)
  Receive Date: 20120711
  Receipt Date: 20160830
  Transmission Date: 20161109
  Serious: Yes (Other)
  Sender: FDA-Public Use
  Company Number: JP-GLAXOSMITHKLINE-B0801467A

PATIENT
  Age: 75 Year
  Sex: Male

DRUGS (9)
  1. BENZALIN [Concomitant]
     Active Substance: NITRAZEPAM
     Indication: BIPOLAR DISORDER
     Route: 048
  2. DEPAKENE [Concomitant]
     Active Substance: VALPROIC ACID
     Indication: MOOD SWINGS
     Route: 048
     Dates: start: 20110510, end: 20110720
  3. LAMOTRIGINE. [Suspect]
     Active Substance: LAMOTRIGINE
     Indication: DEPRESSION
     Route: 048
     Dates: start: 20110809, end: 20120417
  4. DEPAKENE [Concomitant]
     Active Substance: VALPROIC ACID
     Indication: MOOD SWINGS
     Route: 048
     Dates: start: 20110721, end: 20120116
  5. DEPAKENE [Concomitant]
     Active Substance: VALPROIC ACID
     Indication: MOOD SWINGS
     Route: 048
  6. BENZALIN [Concomitant]
     Active Substance: NITRAZEPAM
     Indication: INSOMNIA
     Route: 048
     Dates: start: 201104
  7. SEROQUEL [Concomitant]
     Active Substance: QUETIAPINE FUMARATE
     Indication: BIPOLAR DISORDER
     Route: 048
     Dates: start: 20110415, end: 20110721
  8. PAROXETINE HYDROCHLORIDE. [Suspect]
     Active Substance: PAROXETINE HYDROCHLORIDE
     Indication: PROPHYLAXIS
     Route: 048
     Dates: start: 2009, end: 20110105
  9. MEILAX [Concomitant]
     Active Substance: ETHYL LOFLAZEPATE
     Indication: BIPOLAR DISORDER
     Route: 048

REACTIONS (18)
  - Abdominal discomfort [Unknown]
  - Pain [Unknown]
  - Dizziness [Recovering/Resolving]
  - Incoherent [Unknown]
  - Rash [Recovered/Resolved]
  - Anxiety [Unknown]
  - Depressed mood [Unknown]
  - Delusion [Unknown]
  - Tremor [Recovering/Resolving]
  - Anosognosia [Unknown]
  - Stomatitis [Recovered/Resolved]
  - Feeling abnormal [Unknown]
  - Mental impairment [Unknown]
  - Mania [Unknown]
  - Irritability [Unknown]
  - Depression [Unknown]
  - Impulsive behaviour [Unknown]
  - Sedation [Unknown]

NARRATIVE: CASE EVENT DATE: 201103
